FAERS Safety Report 15040976 (Version 1)
Quarter: 2018Q2

REPORT INFORMATION
  Report Type: Spontaneous
  Country: US (occurrence: US)
  Receive Date: 20180620
  Receipt Date: 20180620
  Transmission Date: 20180711
  Serious: No
  Sender: FDA-Public Use
  Company Number: US-BAXTER-2018BAX017255

PATIENT
  Sex: Female

DRUGS (2)
  1. 0.9% SODIUM CHLORIDE IRRIGATION, USP [Suspect]
     Active Substance: SODIUM CHLORIDE
     Indication: IRRIGATION THERAPY
     Dosage: 1000 ML PLASTIC POUR BOTTLE
     Route: 045
  2. 0.9% SODIUM CHLORIDE IRRIGATION, USP [Suspect]
     Active Substance: SODIUM CHLORIDE
     Dosage: 1 BOTTLE, 1000 ML PLASTIC POUR BOTTLE
     Route: 045
     Dates: start: 20180611

REACTIONS (2)
  - Rhinalgia [Unknown]
  - Burning sensation [Unknown]

NARRATIVE: CASE EVENT DATE: 20180611
